FAERS Safety Report 11367636 (Version 1)
Quarter: 2015Q3

REPORT INFORMATION
  Report Type: Spontaneous
  Country: US (occurrence: US)
  Receive Date: 20150811
  Receipt Date: 20150811
  Transmission Date: 20151125
  Serious: No
  Sender: FDA-Public Use
  Company Number: US-ELI_LILLY_AND_COMPANY-US201205007377

PATIENT
  Age: 55 Year
  Sex: Male
  Weight: 85.26 kg

DRUGS (3)
  1. SYNTHROID [Concomitant]
     Active Substance: LEVOTHYROXINE SODIUM
     Indication: THYROID DISORDER
     Dosage: 125 UG, UNK
  2. SIMVASTATIN. [Concomitant]
     Active Substance: SIMVASTATIN
     Indication: BLOOD TESTOSTERONE INCREASED
     Dosage: 40 MG, UNK
  3. AXIRON [Suspect]
     Active Substance: TESTOSTERONE
     Dosage: UNK

REACTIONS (1)
  - Blood testosterone decreased [Not Recovered/Not Resolved]
